FAERS Safety Report 17429237 (Version 1)
Quarter: 2020Q1

REPORT INFORMATION
  Report Type: Spontaneous
  Country: US (occurrence: US)
  Receive Date: 20200216
  Receipt Date: 20200216
  Transmission Date: 20200409
  Serious: Yes (Disabling, Other)
  Sender: FDA-Public Use
  Company Number: None

PATIENT
  Age: 35 Year
  Sex: Female
  Weight: 65.77 kg

DRUGS (1)
  1. MIRENA [Suspect]
     Active Substance: LEVONORGESTREL
     Dates: start: 20190917, end: 20200128

REACTIONS (6)
  - Weight increased [None]
  - Mood swings [None]
  - Crying [None]
  - Dysmenorrhoea [None]
  - Depressed mood [None]
  - Pain [None]

NARRATIVE: CASE EVENT DATE: 20190914
